FAERS Safety Report 11802712 (Version 1)
Quarter: 2015Q4

REPORT INFORMATION
  Report Type: Spontaneous
  Country: CH (occurrence: CH)
  Receive Date: 20151204
  Receipt Date: 20151204
  Transmission Date: 20160305
  Serious: Yes (Other)
  Sender: FDA-Public Use
  Company Number: CH-LPDUSPRD-20150957

PATIENT
  Age: 79 Year
  Sex: Male
  Weight: 59.7 kg

DRUGS (19)
  1. MYCOSTATINE [Concomitant]
     Active Substance: NYSTATIN
     Dosage: DOSE NOT PROVIDED
     Route: 049
     Dates: start: 20150918, end: 20150927
  2. ACIDE FOLIQUE [Concomitant]
     Active Substance: FOLIC ACID
     Dosage: 5 MG / DAY
     Route: 048
  3. PARACETAMOL [Suspect]
     Active Substance: ACETAMINOPHEN
     Dosage: 1000MG, SEE NARR
     Route: 048
     Dates: start: 20150916, end: 20150922
  4. CEFTRIAXONE. [Suspect]
     Active Substance: CEFTRIAXONE
     Dosage: 2000 MG DAILY
     Route: 042
     Dates: start: 20150915, end: 20150921
  5. TRAMADOL. [Concomitant]
     Active Substance: TRAMADOL
     Dosage: DOSE NOT PROVIDED
     Route: 048
  6. SPIRIVA [Concomitant]
     Active Substance: TIOTROPIUM BROMIDE MONOHYDRATE
     Dosage: 1 DOSAGE FORM/DAY
     Route: 055
  7. QUETIAPINE [Concomitant]
     Active Substance: QUETIAPINE
     Dosage: DOSE NOT PROVIDED
     Route: 048
     Dates: start: 20150919, end: 20150930
  8. BECOZYME [Concomitant]
     Active Substance: VITAMINS
     Dosage: 1 DOSAGE FORM / DAY
     Route: 048
  9. BENERVA [Concomitant]
     Active Substance: THIAMINE
     Dosage: 1000 MG /DAY
     Route: 048
  10. LEXOTANIL [Suspect]
     Active Substance: BROMAZEPAM
     Dosage: 1.5 MG
     Route: 048
     Dates: start: 20150917, end: 20150917
  11. FERINJECT [Suspect]
     Active Substance: FERRIC CARBOXYMALTOSE
     Dosage: 500 MG TIMES 2 DOSES
     Route: 041
     Dates: start: 20150918, end: 20151009
  12. FUROSEMIDE. [Suspect]
     Active Substance: FUROSEMIDE
     Dosage: 20 MG
     Route: 040
     Dates: start: 20150918, end: 20150918
  13. ALUCOL [Suspect]
     Active Substance: ALUMINUM HYDROXIDE\MAGNESIUM HYDROXIDE
     Dosage: 1 DOSAGE FORM
     Route: 048
     Dates: start: 20150916, end: 20150916
  14. ATORVASTATIN CALCIUM. [Concomitant]
     Active Substance: ATORVASTATIN CALCIUM
     Dosage: DOSE NOT PROVIDED
     Route: 048
  15. KONAKION [Concomitant]
     Active Substance: PHYTONADIONE
     Dosage: 10 MG / DAY
     Route: 040
     Dates: start: 20150916, end: 20150926
  16. NEBILET [Concomitant]
     Active Substance: NEBIVOLOL
     Dosage: 2.5 MG DAILY
     Route: 048
     Dates: start: 20150917
  17. TORASEMIDE [Concomitant]
     Active Substance: TORSEMIDE
     Dosage: 5 MG DAILY
     Route: 048
     Dates: start: 20150919, end: 20150925
  18. NEXIUM [Concomitant]
     Active Substance: ESOMEPRAZOLE MAGNESIUM
     Dosage: DOSE NOT PROVIDED
     Route: 048
     Dates: start: 20150917
  19. CELEXANE [Concomitant]
     Dosage: DOSE NOT PROVIDED
     Route: 058

REACTIONS (12)
  - Carotid artery stenosis [Unknown]
  - Pulmonary arterial hypertension [Unknown]
  - Liver disorder [Unknown]
  - Systemic sclerosis [Unknown]
  - Acute hepatic failure [Unknown]
  - Raynaud^s phenomenon [Unknown]
  - Sclerodactylia [Unknown]
  - Ascites [Unknown]
  - Cerebrovascular accident [Unknown]
  - Hepatic cirrhosis [Unknown]
  - Oesophageal motility disorder [Unknown]
  - Liver injury [Unknown]

NARRATIVE: CASE EVENT DATE: 2015
